FAERS Safety Report 5483782-X (Version None)
Quarter: 2007Q4

REPORT INFORMATION
  Report Type: 
  Country: None (occurrence: None)
  Receive Date: 20071012
  Receipt Date: 20071010
  Transmission Date: 20080405
  Serious: Yes (Hospitalization)
  Sender: FDA-Public Use
  Company Number: B0475501A

PATIENT
  Age: 64 Year
  Sex: Female

DRUGS (14)
  1. REQUIP [Suspect]
     Indication: PARKINSON'S DISEASE
     Route: 048
     Dates: start: 20070118, end: 20070528
  2. LEVODOPA [Concomitant]
     Route: 065
  3. PERMAX [Concomitant]
     Indication: PARKINSON'S DISEASE
     Dosage: 500MG PER DAY
     Route: 048
  4. TERNELIN [Concomitant]
     Indication: MUSCULOSKELETAL STIFFNESS
     Dosage: 3MG PER DAY
     Route: 048
  5. MERISLON [Concomitant]
     Indication: DIZZINESS
     Dosage: 18MG PER DAY
     Route: 048
  6. NAUZELIN [Concomitant]
     Indication: NAUSEA
     Dosage: 60MG PER DAY
     Route: 048
  7. SELBEX [Concomitant]
     Indication: GASTRITIS
     Dosage: 150MG PER DAY
     Route: 048
  8. EVISTA [Concomitant]
     Indication: OSTEOPOROSIS
     Dosage: 60MG PER DAY
     Route: 048
  9. LANSOPRAZOLE [Concomitant]
     Indication: GASTROOESOPHAGEAL REFLUX DISEASE
     Dosage: 30MG PER DAY
     Route: 048
  10. DEPAS [Concomitant]
     Indication: MUSCULOSKELETAL STIFFNESS
     Dosage: 1.5MG PER DAY
     Route: 048
  11. URSO 250 [Concomitant]
     Indication: CHOLELITHIASIS
     Dosage: 300MG PER DAY
     Route: 048
  12. ZOLPIDEM [Concomitant]
     Indication: INSOMNIA
     Dosage: 5MG PER DAY
     Route: 048
  13. MENESIT [Concomitant]
     Indication: PARKINSON'S DISEASE
     Dosage: 800MG PER DAY
     Route: 048
  14. CALBLOCK [Concomitant]
     Indication: HYPERTENSION
     Dosage: 8MG PER DAY
     Route: 048

REACTIONS (2)
  - MUSCULAR WEAKNESS [None]
  - NECK PAIN [None]
